FAERS Safety Report 7289287-8 (Version None)
Quarter: 2011Q1

REPORT INFORMATION
  Report Type: 
  Country: None (occurrence: None)
  Receive Date: 20110211
  Receipt Date: 20110131
  Transmission Date: 20110831
  Serious: Yes (Hospitalization, Other)
  Sender: FDA-Public Use
  Company Number: JP-PFIZER INC-2011020777

PATIENT
  Age: 80 Year
  Sex: Female
  Weight: 63.5 kg

DRUGS (13)
  1. LIPITOR [Suspect]
     Indication: DYSLIPIDAEMIA
     Dosage: 5 MG QD
     Route: 048
     Dates: end: 20101224
  2. ATELEC [Concomitant]
     Indication: HYPERTENSION
     Dosage: UNK
  3. GASMOTIN [Concomitant]
     Indication: ABDOMINAL DISCOMFORT
     Dosage: UNK
  4. MUCOSTA [Concomitant]
     Indication: ABDOMINAL DISCOMFORT
     Dosage: UNK
  5. UNASYN [Suspect]
     Indication: PNEUMONIA
     Dosage: 3 G BID
     Route: 041
     Dates: start: 20101220, end: 20101228
  6. ALLEGRA [Concomitant]
     Indication: PRURITUS
     Dosage: UNK
  7. CARBIDOPA AND LEVODOPA [Concomitant]
     Indication: PARKINSONISM
     Dosage: UNK
     Dates: start: 20101220
  8. GASCON [Concomitant]
     Indication: ABDOMINAL DISCOMFORT
     Dosage: UNK
  9. MYSLEE [Concomitant]
     Indication: INSOMNIA
     Dosage: UNK
  10. ABILIT [Concomitant]
     Dosage: UNK
     Dates: end: 20101220
  11. GASTER [Concomitant]
     Indication: ABDOMINAL DISCOMFORT
     Dosage: UNK
  12. DOGMATYL [Concomitant]
     Dosage: UNK
     Dates: end: 20101220
  13. OPALMON [Concomitant]
     Indication: LUMBAR SPINAL STENOSIS
     Dosage: UNK

REACTIONS (6)
  - PNEUMONIA [None]
  - DRUG ERUPTION [None]
  - PARKINSONISM [None]
  - MYALGIA [None]
  - BLOOD CREATINE PHOSPHOKINASE INCREASED [None]
  - RHABDOMYOLYSIS [None]
